FAERS Safety Report 8092982-4 (Version None)
Quarter: 2012Q1

REPORT INFORMATION
  Report Type: 
  Country: None (occurrence: None)
  Receive Date: 20120128
  Receipt Date: 20111017
  Transmission Date: 20120608
  Serious: No
  Sender: FDA-Public Use
  Company Number: US-ABBOTT-06P-163-0336277-00

PATIENT
  Sex: Male
  Weight: 98.4 kg

DRUGS (8)
  1. HUMIRA [Suspect]
     Indication: RHEUMATOID ARTHRITIS
  2. LOTREL [Concomitant]
     Indication: HYPERTENSION
  3. DIOVAN [Concomitant]
     Indication: HYPERTENSION
     Dosage: 160MG QD
     Dates: start: 20060101
  4. ASACOL [Concomitant]
     Indication: PRODUCT USED FOR UNKNOWN INDICATION
     Dosage: BID
  5. UNKNOWN BLOOD PRESSURE MEDICATION [Suspect]
     Indication: HYPERTENSION
  6. SPIRIVA [Concomitant]
     Indication: CHRONIC OBSTRUCTIVE PULMONARY DISEASE
     Dosage: Q DAY
     Route: 055
     Dates: start: 20060101
  7. HUMIRA [Suspect]
     Indication: RHEUMATOID ARTHRITIS
     Dosage: QOW
     Route: 058
     Dates: start: 20060101
  8. FOLIC ACID [Concomitant]
     Indication: PRODUCT USED FOR UNKNOWN INDICATION
     Route: 048

REACTIONS (3)
  - INJECTION SITE PAIN [None]
  - INJECTION SITE URTICARIA [None]
  - PRURITUS [None]
